FAERS Safety Report 6403029-7 (Version None)
Quarter: 2009Q4

REPORT INFORMATION
  Report Type: 
  Country: None (occurrence: None)
  Receive Date: 20091014
  Receipt Date: 20091014
  Transmission Date: 20100525
  Serious: No
  Sender: FDA-Public Use
  Company Number: None

PATIENT
  Age: 55 Year
  Sex: Female
  Weight: 171.4597 kg

DRUGS (8)
  1. ZICAM NASAL SPRAY [Suspect]
     Indication: UPPER RESPIRATORY TRACT INFECTION
     Dosage: NASAL
     Route: 045
     Dates: start: 20090508, end: 20090514
  2. GUAIFENESIN ER [Concomitant]
  3. GUAIFENESIN/CODEINE SYRUP [Concomitant]
  4. AMLODIPINE [Concomitant]
  5. ATENOLOL [Concomitant]
  6. HYDROCHLOROTHIAZIDE [Concomitant]
  7. FLUOXETINE [Concomitant]
  8. SULINDAC [Concomitant]

REACTIONS (2)
  - AGEUSIA [None]
  - ANOSMIA [None]
